FAERS Safety Report 24421658 (Version 2)
Quarter: 2024Q4

REPORT INFORMATION
  Report Type: Report from Study
  Country: US (occurrence: US)
  Receive Date: 20241010
  Receipt Date: 20241210
  Transmission Date: 20250114
  Serious: Yes (Other)
  Sender: NOVARTIS
  Company Number: US-002147023-NVSC2024US196749

PATIENT
  Sex: Female

DRUGS (3)
  1. KESIMPTA [Suspect]
     Active Substance: OFATUMUMAB
     Indication: Product used for unknown indication
     Dosage: UNK
     Route: 065
  2. HEPARIN [Concomitant]
     Active Substance: HEPARIN SODIUM
     Indication: Product used for unknown indication
     Dosage: UNK
     Route: 065
  3. ELIQUIS [Concomitant]
     Active Substance: APIXABAN
     Indication: Product used for unknown indication
     Dosage: UNK
     Route: 065

REACTIONS (24)
  - Loss of consciousness [Unknown]
  - Deep vein thrombosis [Unknown]
  - Thrombosis [Unknown]
  - Infection [Unknown]
  - Fatigue [Unknown]
  - Pyrexia [Unknown]
  - Fall [Unknown]
  - Brain fog [Unknown]
  - Hypertension [Unknown]
  - Ultrasound Doppler abnormal [Unknown]
  - Factor V Leiden mutation [Unknown]
  - May-Thurner syndrome [Unknown]
  - Inappropriate schedule of product administration [Unknown]
  - Malaise [Unknown]
  - Peripheral swelling [Unknown]
  - Skin discolouration [Unknown]
  - Cardiovascular disorder [Unknown]
  - Gait disturbance [Unknown]
  - Feeling abnormal [Unknown]
  - Arthralgia [Unknown]
  - Pain in extremity [Unknown]
  - Mental disorder [Unknown]
  - Vertebrobasilar insufficiency [Unknown]
  - Limb discomfort [Unknown]
